FAERS Safety Report 6144095-6 (Version None)
Quarter: 2009Q2

REPORT INFORMATION
  Report Type: 
  Country: None (occurrence: None)
  Receive Date: 20090401
  Receipt Date: 20090309
  Transmission Date: 20091009
  Serious: Yes (Other)
  Sender: FDA-Public Use
  Company Number: 2008EU002813

PATIENT
  Age: 7 Year
  Sex: Female
  Weight: 25 kg

DRUGS (3)
  1. PROGRAF [Suspect]
     Indication: RENAL TRANSPLANT
     Dosage: 2G. BID, ORAL
     Route: 048
     Dates: start: 20040101
  2. AZATHIOPRINE [Concomitant]
  3. PREDNSIOLONE (PREDNISOLONE) [Concomitant]

REACTIONS (3)
  - CONDITION AGGRAVATED [None]
  - LIPOHYPERTROPHY [None]
  - MOBILITY DECREASED [None]
